FAERS Safety Report 10357040 (Version 1)
Quarter: 2014Q3

REPORT INFORMATION
  Report Type: Spontaneous
  Country: CH (occurrence: CH)
  Receive Date: 20140801
  Receipt Date: 20140801
  Transmission Date: 20150326
  Serious: Yes (Life-Threatening, Hospitalization)
  Sender: FDA-Public Use
  Company Number: CH-ELI_LILLY_AND_COMPANY-CH201407009553

PATIENT
  Age: 70 Year
  Sex: Male

DRUGS (2)
  1. CIALIS [Suspect]
     Active Substance: TADALAFIL
     Indication: ERECTILE DYSFUNCTION
     Dosage: 1 DF, UNKNOWN
     Route: 065
     Dates: end: 20130724
  2. ZESTRIL [Suspect]
     Active Substance: LISINOPRIL
     Indication: HYPERTENSION
     Dosage: 50 MG, BID
     Route: 048
     Dates: start: 201101

REACTIONS (9)
  - Anaphylactic shock [Unknown]
  - Ischaemic hepatitis [Unknown]
  - Renal failure acute [Unknown]
  - Hypovolaemic shock [Recovering/Resolving]
  - Distributive shock [Recovering/Resolving]
  - Circulatory collapse [Unknown]
  - Foaming at mouth [Unknown]
  - Blood sodium increased [Unknown]
  - Septic shock [Unknown]

NARRATIVE: CASE EVENT DATE: 20130724
